FAERS Safety Report 15903192 (Version 8)
Quarter: 2023Q4

REPORT INFORMATION
  Report Type: Report from Study
  Country: CA (occurrence: CA)
  Receive Date: 20190202
  Receipt Date: 20231207
  Transmission Date: 20240109
  Serious: Yes (Hospitalization, Other)
  Sender: FDA-Public Use
  Company Number: CA-TAKEDA-2019TUS003952

PATIENT
  Age: 42 Year
  Sex: Male

DRUGS (5)
  1. VEDOLIZUMAB [Suspect]
     Active Substance: VEDOLIZUMAB
     Indication: Crohn^s disease
     Dosage: 300 MILLIGRAM
     Route: 042
     Dates: start: 20181023
  2. VEDOLIZUMAB [Suspect]
     Active Substance: VEDOLIZUMAB
     Dosage: 300 MILLIGRAM, Q4WEEKS
     Route: 042
     Dates: start: 20190604
  3. VEDOLIZUMAB [Suspect]
     Active Substance: VEDOLIZUMAB
     Dosage: 300 MILLIGRAM, Q4WEEKS
     Route: 042
  4. ZOPICLONE [Concomitant]
     Active Substance: ZOPICLONE
     Dosage: UNK
  5. WARFARIN [Concomitant]
     Active Substance: WARFARIN
     Dosage: UNK

REACTIONS (10)
  - Intestinal obstruction [Unknown]
  - Abdominal discomfort [Unknown]
  - Pallor [Unknown]
  - Asthenia [Unknown]
  - Incision site discharge [Unknown]
  - Drug ineffective [Unknown]
  - Off label use [Unknown]
  - Incorrect dose administered [Unknown]
  - Product dose omission issue [Unknown]
  - Constipation [Unknown]

NARRATIVE: CASE EVENT DATE: 20190604
